FAERS Safety Report 7293869-7 (Version None)
Quarter: 2011Q1

REPORT INFORMATION
  Report Type: 
  Country: None (occurrence: None)
  Receive Date: 20110203
  Receipt Date: 20110120
  Transmission Date: 20110831
  Serious: Yes (Other)
  Sender: FDA-Public Use
  Company Number: 025961

PATIENT
  Age: 34 Year
  Sex: Female
  Weight: 26.3 kg

DRUGS (2)
  1. DILANTIN [Suspect]
     Indication: CONVULSION
  2. KEPPRA [Suspect]
     Indication: CONVULSION
     Dosage: (750 MG) ; (500 MG)
     Dates: start: 20100101

REACTIONS (8)
  - CATATONIA [None]
  - VOMITING [None]
  - MOOD SWINGS [None]
  - WEIGHT DECREASED [None]
  - CONVULSION [None]
  - MALABSORPTION [None]
  - DEPRESSION [None]
  - ANGER [None]
